FAERS Safety Report 10022411 (Version 3)
Quarter: 2014Q3

REPORT INFORMATION
  Report Type: Spontaneous
  Country: IT (occurrence: IT)
  Receive Date: 20140319
  Receipt Date: 20140707
  Transmission Date: 20150326
  Serious: Yes (Hospitalization)
  Sender: FDA-Public Use
  Company Number: CHPA2014IT003991

PATIENT
  Age: 79 Year
  Sex: Female

DRUGS (5)
  1. CARDIOASPIRIN [Concomitant]
     Active Substance: ASPIRIN
  2. TORVAST [Concomitant]
     Active Substance: ATORVASTATIN
  3. PERINDOPRIL [Concomitant]
     Active Substance: PERINDOPRIL
  4. METFORAL [Concomitant]
     Active Substance: METFORMIN HYDROCHLORIDE
  5. PURSENNID [Suspect]
     Active Substance: SENNOSIDES A AND B CALCIUM
     Indication: CONSTIPATION
     Dosage: 2 DF, UNK
     Route: 048
     Dates: start: 20140306, end: 20140306

REACTIONS (2)
  - Diarrhoea [Recovering/Resolving]
  - Abdominal pain [Recovering/Resolving]

NARRATIVE: CASE EVENT DATE: 20140306
